FAERS Safety Report 17330443 (Version 1)
Quarter: 2020Q1

REPORT INFORMATION
  Report Type: Report from Study
  Country: US (occurrence: US)
  Receive Date: 20200127
  Receipt Date: 20200127
  Transmission Date: 20200409
  Serious: Yes (Death)
  Sender: FDA-Public Use
  Company Number: US-ACTELION-A-NJ2018-178225

PATIENT
  Age: 70 Year
  Sex: Female
  Weight: 124.72 kg

DRUGS (20)
  1. OPSUMIT [Suspect]
     Active Substance: MACITENTAN
     Indication: PULMONARY ARTERIAL HYPERTENSION
     Dosage: 10 MG, QD
     Route: 048
     Dates: start: 20180823
  2. JANUVIA [Concomitant]
     Active Substance: SITAGLIPTIN PHOSPHATE
     Dosage: 100 MG, QD
     Dates: start: 1998
  3. WARFARIN [Concomitant]
     Active Substance: WARFARIN
     Dosage: 6 MG, QD
     Dates: start: 2017
  4. HYDROCODONE BITARTRATE AND ACETAMINOPHEN [Concomitant]
     Active Substance: ACETAMINOPHEN\HYDROCODONE BITARTRATE
     Dosage: 7.5 MG/325 MG PRN
     Dates: start: 1998
  5. AVAPRO [Concomitant]
     Active Substance: IRBESARTAN
     Dosage: 300 MG, QD
     Dates: start: 1998
  6. DULOXETINE. [Concomitant]
     Active Substance: DULOXETINE
     Dosage: 60 MG, QD
     Dates: start: 1998
  7. FENTANYL. [Concomitant]
     Active Substance: FENTANYL
     Dosage: 75 MCG, Q72H
     Dates: start: 1998
  8. LANTUS [Concomitant]
     Active Substance: INSULIN GLARGINE
     Dosage: 80 U, UNK
     Dates: start: 1998
  9. SYMBICORT [Concomitant]
     Active Substance: BUDESONIDE\FORMOTEROL FUMARATE DIHYDRATE
     Dosage: 2 PUFFS BID
     Dates: start: 1998
  10. NOVOLOG [Concomitant]
     Active Substance: INSULIN ASPART
     Dosage: 3-4XDAILY
     Dates: start: 1998
  11. PROAIR HFA [Concomitant]
     Active Substance: ALBUTEROL SULFATE
     Dosage: UNK
     Dates: start: 1998
  12. REQUIP [Concomitant]
     Active Substance: ROPINIROLE HYDROCHLORIDE
     Dosage: 2 MG, QD
     Dates: start: 1998
  13. ASPIRIN 81 [Concomitant]
     Active Substance: ASPIRIN
     Dosage: 81 MG, QD
     Dates: start: 1998
  14. ISOSORBIDE. [Concomitant]
     Active Substance: ISOSORBIDE
     Dosage: 60 MG, QD
     Dates: start: 1998
  15. AMIODARONE [Concomitant]
     Active Substance: AMIODARONE
     Dosage: 200 MG, QD
     Dates: start: 2017
  16. BUMEX [Concomitant]
     Active Substance: BUMETANIDE
     Dosage: 2 MG, QD
     Dates: start: 1998
  17. PLAVIX [Concomitant]
     Active Substance: CLOPIDOGREL BISULFATE
     Dosage: UNK
     Dates: start: 2017
  18. METOPROLOL. [Concomitant]
     Active Substance: METOPROLOL
     Dosage: 25 MG, BID
     Dates: start: 1998
  19. CELEBREX [Concomitant]
     Active Substance: CELECOXIB
     Dosage: 200 MG, QD
     Dates: start: 1998
  20. OXYGEN. [Concomitant]
     Active Substance: OXYGEN

REACTIONS (14)
  - Condition aggravated [Recovering/Resolving]
  - Dysuria [Recovering/Resolving]
  - Living in residential institution [Unknown]
  - Pneumonia [Fatal]
  - Pain [Unknown]
  - Nasal congestion [Unknown]
  - Oedema peripheral [Recovering/Resolving]
  - Headache [Unknown]
  - Oropharyngeal pain [Unknown]
  - Asthenia [Recovering/Resolving]
  - Dyspepsia [Unknown]
  - Dyspnoea [Recovering/Resolving]
  - Feeling abnormal [Recovering/Resolving]
  - Tremor [Unknown]

NARRATIVE: CASE EVENT DATE: 201809
